FAERS Safety Report 5648541-3 (Version None)
Quarter: 2008Q1

REPORT INFORMATION
  Report Type: 
  Country: None (occurrence: None)
  Receive Date: 20080303
  Receipt Date: 20080303
  Transmission Date: 20080703
  Serious: No
  Sender: FDA-Public Use
  Company Number: None

PATIENT
  Sex: Female
  Weight: 114 kg

DRUGS (14)
  1. BEVACIZUMAB (RHUMAB VEGF) [Suspect]
     Dosage: 1160 MG
     Dates: end: 20080220
  2. ELOXATIN [Suspect]
     Dosage: 360 MG
     Dates: end: 20080220
  3. FLUOROURACIL [Suspect]
     Dosage: 11880 MG
     Dates: end: 20080220
  4. ACIPHEX [Concomitant]
  5. AMITRIPTYLINE HCL [Concomitant]
  6. ATENOLOL [Concomitant]
  7. BENTYL [Concomitant]
  8. CLARITIN [Concomitant]
  9. DRAMAMINE [Concomitant]
  10. IMITREX [Concomitant]
  11. IMODIUM [Concomitant]
  12. LORAZEPAM [Concomitant]
  13. WELLBUTRIN [Concomitant]
  14. ZOLOFT [Concomitant]

REACTIONS (1)
  - PULMONARY ARTERY THROMBOSIS [None]
